FAERS Safety Report 20530839 (Version 1)
Quarter: 2022Q1

REPORT INFORMATION
  Report Type: Spontaneous
  Country: US (occurrence: US)
  Receive Date: 20220301
  Receipt Date: 20220301
  Transmission Date: 20220423
  Serious: No
  Sender: FDA-Public Use
  Company Number: US-IGSA-BIG0015089

PATIENT
  Age: 60 Year
  Sex: Female

DRUGS (7)
  1. PROLASTIN-C LIQUID [Suspect]
     Active Substance: .ALPHA.1-PROTEINASE INHIBITOR HUMAN
     Indication: Alpha-1 antitrypsin deficiency
     Dosage: UNK
     Route: 042
  2. CALCIUM [Concomitant]
     Active Substance: CALCIUM
  3. ENBREL [Concomitant]
     Active Substance: ETANERCEPT
  4. ETODOLAC [Concomitant]
     Active Substance: ETODOLAC
  5. FISH OIL [Concomitant]
     Active Substance: FISH OIL
  6. GLIMEPIRIDE [Concomitant]
     Active Substance: GLIMEPIRIDE
  7. APAP [Concomitant]
     Active Substance: ACETAMINOPHEN

REACTIONS (1)
  - Platelet count decreased [Unknown]

NARRATIVE: CASE EVENT DATE: 20210623
